FAERS Safety Report 8367636 (Version 2)
Quarter: 2013Q1

REPORT INFORMATION
  Report Type: Report from Study
  Country: US (occurrence: US)
  Receive Date: 20120128
  Receipt Date: 20130129
  Transmission Date: 20140127
  Serious: No
  Sender: FDA-Public Use
  Company Number: US-ABBOTT-11P-163-0732366-00

PATIENT
  Age: 49 Year
  Sex: Female

DRUGS (2)
  1. HUMIRA 40 MG/0.8 ML PEN [Suspect]
     Indication: PSORIASIS
     Dates: start: 20110606, end: 201111
  2. NORVASC [Concomitant]
     Indication: HYPERTENSION
     Dosage: 37.5 MG DAILY

REACTIONS (3)
  - Anxiety [Unknown]
  - Injection site pain [Unknown]
  - Psoriasis [Unknown]
